FAERS Safety Report 25459690 (Version 1)
Quarter: 2025Q2

REPORT INFORMATION
  Report Type: Spontaneous
  Country: US (occurrence: US)
  Receive Date: 20250620
  Receipt Date: 20250620
  Transmission Date: 20250716
  Serious: Yes (Other)
  Sender: EMD SERONO INC
  Company Number: US-Merck Healthcare KGaA-2025030277

PATIENT
  Sex: Female

DRUGS (2)
  1. CLADRIBINE [Suspect]
     Active Substance: CLADRIBINE
     Indication: Product used for unknown indication
  2. CLADRIBINE [Suspect]
     Active Substance: CLADRIBINE

REACTIONS (1)
  - Lymphocyte count decreased [Unknown]
